APPROVED DRUG PRODUCT: DESVENLAFAXINE SUCCINATE
Active Ingredient: DESVENLAFAXINE SUCCINATE
Strength: EQ 50MG BASE
Dosage Form/Route: TABLET, EXTENDED RELEASE;ORAL
Application: A204095 | Product #001
Applicant: PHARMOBEDIENT CONSULTING LLC
Approved: Jun 29, 2015 | RLD: No | RS: No | Type: DISCN